FAERS Safety Report 4891820-8 (Version None)
Quarter: 2006Q1

REPORT INFORMATION
  Report Type: 
  Country: None (occurrence: None)
  Receive Date: 20060123
  Receipt Date: 20060105
  Transmission Date: 20060701
  Serious: Yes (Congenital Anomaly)
  Sender: FDA-Public Use
  Company Number: GB200512001447

PATIENT
  Age: 1 Day
  Sex: Female
  Weight: 3.4 kg

DRUGS (1)
  1. ZYPREXA [Suspect]
     Dosage: TRANS-SEMEN

REACTIONS (3)
  - CONGENITAL ANOMALY [None]
  - HAEMANGIOMA OF SKIN [None]
  - TRANSMISSION OF DRUG VIA SEMEN [None]
